FAERS Safety Report 19759373 (Version 3)
Quarter: 2022Q2

REPORT INFORMATION
  Report Type: Report from Study
  Country: BE (occurrence: BE)
  Receive Date: 20210829
  Receipt Date: 20220614
  Transmission Date: 20220721
  Serious: Yes (Hospitalization)
  Sender: FDA-Public Use
  Company Number: BE-BAXTER-2021BAX024346

PATIENT
  Age: 68 Year
  Sex: Female
  Weight: 90 kg

DRUGS (33)
  1. CYCLOPHOSPHAMIDE [Suspect]
     Active Substance: CYCLOPHOSPHAMIDE
     Indication: Diffuse large B-cell lymphoma
     Dosage: 1 DAY
     Route: 042
     Dates: start: 20210608, end: 20210608
  2. CYCLOPHOSPHAMIDE [Suspect]
     Active Substance: CYCLOPHOSPHAMIDE
     Dosage: 1500 MILLIGRAM,QD
     Route: 042
     Dates: start: 20210629, end: 20210629
  3. CYCLOPHOSPHAMIDE [Suspect]
     Active Substance: CYCLOPHOSPHAMIDE
     Dosage: DOSE FREQUENCY:1Q3W
     Route: 042
     Dates: start: 20210608
  4. DOXORUBICIN [Suspect]
     Active Substance: DOXORUBICIN
     Indication: Diffuse large B-cell lymphoma
     Dosage: 100 MILLIGRAM,QD
     Route: 042
     Dates: start: 20210608, end: 20210608
  5. DOXORUBICIN [Suspect]
     Active Substance: DOXORUBICIN
     Dosage: 100 MILLIGRAM,QD
     Route: 042
     Dates: start: 20210629, end: 20210629
  6. DOXORUBICIN [Suspect]
     Active Substance: DOXORUBICIN
     Dosage: DOSE FREQUENCY,1Q3W
     Route: 042
     Dates: start: 20210608
  7. RITUXIMAB [Suspect]
     Active Substance: RITUXIMAB
     Indication: Diffuse large B-cell lymphoma
     Dosage: 750 MILLIGRAM,QD
     Route: 042
     Dates: start: 20210607, end: 20210607
  8. RITUXIMAB [Suspect]
     Active Substance: RITUXIMAB
     Dosage: 750 MILLIGRAM,QD
     Route: 042
     Dates: start: 20210629, end: 20210629
  9. RITUXIMAB [Suspect]
     Active Substance: RITUXIMAB
     Dosage: DOSE:1Q3W
     Route: 042
     Dates: start: 20210607
  10. VINCRISTINE [Suspect]
     Active Substance: VINCRISTINE
     Indication: Diffuse large B-cell lymphoma
     Dosage: 2 MILLIGRAM,QD
     Route: 042
     Dates: start: 20210608, end: 20210608
  11. VINCRISTINE [Suspect]
     Active Substance: VINCRISTINE
     Dosage: 2 MILLIGRAM,QD
     Route: 042
     Dates: start: 20210629, end: 20210629
  12. VINCRISTINE [Suspect]
     Active Substance: VINCRISTINE
     Dosage: DOSE FREQUENCY:1Q3W
     Route: 042
     Dates: start: 20210608
  13. PREDNISONE [Suspect]
     Active Substance: PREDNISONE
     Indication: Diffuse large B-cell lymphoma
     Dosage: TABLET
     Route: 048
     Dates: start: 20210608, end: 20210612
  14. PREDNISONE [Suspect]
     Active Substance: PREDNISONE
     Dosage: TABLET
     Route: 048
     Dates: start: 20210629, end: 20210703
  15. PREDNISONE [Suspect]
     Active Substance: PREDNISONE
     Dosage: TABLET
     Route: 048
     Dates: start: 20210720, end: 20210724
  16. PROMETHAZINE [Concomitant]
     Active Substance: PROMETHAZINE HYDROCHLORIDE
     Indication: Premedication
     Dosage: 12 MILLIGRAM,PRN
     Route: 042
     Dates: start: 20210713
  17. PROMETHAZINE [Concomitant]
     Active Substance: PROMETHAZINE HYDROCHLORIDE
     Dosage: 12 MILLIGRAM,PRN
     Route: 042
     Dates: start: 20210720, end: 20210803
  18. ACETAMINOPHEN [Concomitant]
     Active Substance: ACETAMINOPHEN
     Indication: Premedication
     Dosage: 1 GRAM,PRN
     Route: 048
     Dates: start: 20210713
  19. ACETAMINOPHEN [Concomitant]
     Active Substance: ACETAMINOPHEN
     Dosage: UNK
     Route: 065
     Dates: start: 20201020, end: 20210803
  20. METHYLPREDNISOLONE [Concomitant]
     Active Substance: METHYLPREDNISOLONE
     Indication: Prophylaxis
     Dosage: 80 MILLIGRAM,PRN
     Route: 048
     Dates: start: 20210608, end: 20210612
  21. METHYLPREDNISOLONE [Concomitant]
     Active Substance: METHYLPREDNISOLONE
     Dosage: 80 MILLIGRAM,PRN
     Route: 048
     Dates: start: 20210629, end: 20210703
  22. METHYLPREDNISOLONE [Concomitant]
     Active Substance: METHYLPREDNISOLONE
     Dosage: 80 MILLIGRAM,PRN
     Route: 048
     Dates: start: 20210720, end: 20210724
  23. LORMETAZEPAM [Concomitant]
     Active Substance: LORMETAZEPAM
     Indication: Product used for unknown indication
     Dosage: ONGOING
     Route: 065
     Dates: start: 2002
  24. MIRTAZAPINE [Concomitant]
     Active Substance: MIRTAZAPINE
     Indication: Product used for unknown indication
     Dosage: ONGOING
     Route: 065
     Dates: start: 20201028
  25. OMEPRAZOLE [Concomitant]
     Active Substance: OMEPRAZOLE
     Indication: Product used for unknown indication
     Dosage: ONGOING
     Route: 065
     Dates: start: 20081002, end: 20210814
  26. ATORVASTATIN [Concomitant]
     Active Substance: ATORVASTATIN
     Indication: Product used for unknown indication
     Dosage: ONGOING
     Route: 065
     Dates: start: 20201028, end: 20210811
  27. TRAMADOL HYDROCHLORIDE [Concomitant]
     Active Substance: TRAMADOL HYDROCHLORIDE
     Indication: Product used for unknown indication
     Dosage: ONGOING
     Route: 065
     Dates: start: 202105
  28. URSODIOL [Concomitant]
     Active Substance: URSODIOL
     Indication: Product used for unknown indication
     Dosage: ONGOING
     Route: 065
     Dates: start: 20150710
  29. ACYCLOVIR [Concomitant]
     Active Substance: ACYCLOVIR
     Indication: Product used for unknown indication
     Dosage: ONGOING
     Route: 065
     Dates: start: 20210528
  30. ALLOPURINOL [Concomitant]
     Active Substance: ALLOPURINOL
     Indication: Product used for unknown indication
     Dosage: ONGOING
     Route: 065
     Dates: start: 20210528
  31. COTRIMOXAZOLE [Concomitant]
     Active Substance: SULFAMETHOXAZOLE\TRIMETHOPRIM
     Indication: Product used for unknown indication
     Dosage: UNK
     Dates: start: 20210607
  32. LIPEGFILGRASTIM [Concomitant]
     Active Substance: LIPEGFILGRASTIM
     Indication: Product used for unknown indication
     Dosage: UNK
     Dates: start: 20210629, end: 20210720
  33. CIPROFLOXACIN [Concomitant]
     Active Substance: CIPROFLOXACIN
     Indication: Product used for unknown indication
     Dosage: UNK
     Dates: start: 20210706, end: 20210710

REACTIONS (1)
  - Escherichia urinary tract infection [Recovered/Resolved]

NARRATIVE: CASE EVENT DATE: 20210725
